FAERS Safety Report 18092749 (Version 1)
Quarter: 2020Q3

REPORT INFORMATION
  Report Type: Report from Study
  Country: DE (occurrence: DE)
  Receive Date: 20200730
  Receipt Date: 20200730
  Transmission Date: 20201103
  Serious: Yes (Other)
  Sender: FDA-Public Use
  Company Number: DE-TEVA-2020-DE-1807346

PATIENT
  Age: 4 Decade
  Sex: Female

DRUGS (1)
  1. COPAXONE [Suspect]
     Active Substance: GLATIRAMER ACETATE
     Indication: MULTIPLE SCLEROSIS
     Dosage: 20 MILLIGRAM DAILY;
     Dates: start: 20090901

REACTIONS (8)
  - Injection site necrosis [Recovering/Resolving]
  - Injection site inflammation [Recovering/Resolving]
  - Injection site discolouration [Recovering/Resolving]
  - Injection site swelling [Recovering/Resolving]
  - Injection site hypoaesthesia [Recovering/Resolving]
  - Wrong technique in product usage process [Recovering/Resolving]
  - Injection site mass [Recovering/Resolving]
  - Injection site pain [Recovering/Resolving]
